FAERS Safety Report 6229794-X (Version None)
Quarter: 2009Q2

REPORT INFORMATION
  Report Type: 
  Country: None (occurrence: None)
  Receive Date: 20090615
  Receipt Date: 20090603
  Transmission Date: 20091009
  Serious: Yes (Hospitalization)
  Sender: FDA-Public Use
  Company Number: FR-PFIZER INC-2009221900

PATIENT
  Age: 57 Year

DRUGS (18)
  1. ZYVOXID [Suspect]
     Indication: BACTERAEMIA
     Dosage: 600 MG, 2X/DAY
     Dates: end: 20090201
  2. FLAGYL [Suspect]
     Indication: DUST INHALATION PNEUMOPATHY
     Dosage: 500 MG, 3X/DAY
     Dates: start: 20081201, end: 20090201
  3. ROCEPHIN [Suspect]
     Indication: DUST INHALATION PNEUMOPATHY
     Dosage: 2 G, 1X/DAY
     Dates: start: 20081201, end: 20090201
  4. TAHOR [Concomitant]
  5. PLAVIX [Concomitant]
  6. KARDEGIC [Concomitant]
  7. SECTRAL [Concomitant]
  8. GARDENAL ^AVENTIS^ [Concomitant]
  9. LIORESAL [Concomitant]
  10. PERINDOPRIL ERBUMINE [Concomitant]
  11. NEXIUM [Concomitant]
  12. ORAMORPH SR [Concomitant]
  13. LANTUS [Concomitant]
  14. HUMALOG [Concomitant]
  15. ARIXTRA [Concomitant]
  16. FERROSTRANE [Concomitant]
  17. VANCOMYCIN [Concomitant]
     Indication: BACTERAEMIA
     Dosage: UNK
     Dates: start: 20081201
  18. GENTAMYCIN SULFATE [Concomitant]
     Indication: BACTERAEMIA
     Dosage: UNK
     Dates: start: 20081201

REACTIONS (1)
  - EOSINOPHILIA [None]
